FAERS Safety Report 7479848 (Version 4)
Quarter: 2013Q1

REPORT INFORMATION
  Report Type: Spontaneous
  Country: JP (occurrence: JP)
  Receive Date: 20100716
  Receipt Date: 20130305
  Transmission Date: 20140127
  Serious: Yes (Death)
  Sender: FDA-Public Use
  Company Number: GXKR2010JP07532

PATIENT
  Age: 63 Year
  Sex: Male

DRUGS (5)
  1. CEFTRIAXONE [Suspect]
     Indication: COUGH
     Dosage: 2 G/DAY
     Route: 041
     Dates: start: 20100626
  2. CEFTRIAXONE [Suspect]
     Indication: OROPHARYNGEAL PAIN
  3. HEPALS [Suspect]
     Indication: BACK PAIN
     Dosage: 0.5 G/DAY
     Route: 041
     Dates: start: 20100626
  4. SODIUM CHLORIDE [Concomitant]
     Dosage: 100 ML, UNK
  5. DEXAMETHASONE [Concomitant]

REACTIONS (10)
  - Anaphylactic shock [Fatal]
  - Convulsion [Fatal]
  - Cough [Fatal]
  - Dyspnoea [Fatal]
  - Nausea [Fatal]
  - Pharyngeal oedema [Fatal]
  - Laryngeal oedema [Fatal]
  - Conjunctival haemorrhage [Fatal]
  - Cardiac disorder [Fatal]
  - Pulmonary haemorrhage [Fatal]
